FAERS Safety Report 11219923 (Version 4)
Quarter: 2015Q3

REPORT INFORMATION
  Report Type: Spontaneous
  Country: US (occurrence: US)
  Receive Date: 20150625
  Receipt Date: 20150729
  Transmission Date: 20151125
  Serious: Yes (Hospitalization, Other)
  Sender: FDA-Public Use
  Company Number: US-TEVA-573476USA

PATIENT
  Sex: Male

DRUGS (3)
  1. RITUXAN [Suspect]
     Active Substance: RITUXIMAB
     Dates: start: 20150603, end: 20150611
  2. CLADRIBINE. [Suspect]
     Active Substance: CLADRIBINE
     Dates: end: 20150611
  3. GRANIX [Suspect]
     Active Substance: TBO-FILGRASTIM
     Dates: start: 201506, end: 201506

REACTIONS (3)
  - Adverse event [Not Recovered/Not Resolved]
  - White blood cell count decreased [Not Recovered/Not Resolved]
  - Malaise [Not Recovered/Not Resolved]
